APPROVED DRUG PRODUCT: RAMIPRIL
Active Ingredient: RAMIPRIL
Strength: 5MG
Dosage Form/Route: CAPSULE;ORAL
Application: A078849 | Product #001
Applicant: RANBAXY LABORATORIES LTD
Approved: Mar 6, 2009 | RLD: No | RS: No | Type: DISCN